FAERS Safety Report 18263421 (Version 2)
Quarter: 2021Q4

REPORT INFORMATION
  Report Type: Spontaneous
  Country: JP (occurrence: JP)
  Receive Date: 20200914
  Receipt Date: 20211117
  Transmission Date: 20220303
  Serious: Yes (Hospitalization, Other)
  Sender: FDA-Public Use
  Company Number: JP-GILEAD-2020-0494260

PATIENT
  Age: 82 Year
  Sex: Female
  Weight: 42 kg

DRUGS (16)
  1. VEMLIDY [Suspect]
     Active Substance: TENOFOVIR ALAFENAMIDE FUMARATE
     Indication: Hepatitis B
     Dosage: 25 MG, QD
     Route: 048
     Dates: start: 20181101
  2. VEMLIDY [Suspect]
     Active Substance: TENOFOVIR ALAFENAMIDE FUMARATE
     Indication: Hepatic cirrhosis
     Dosage: 25 MG, QD
     Route: 048
     Dates: start: 20200908
  3. SODIUM FERROUS CITRATE [Concomitant]
     Active Substance: SODIUM FERROUS CITRATE
     Indication: Iron deficiency anaemia
     Dosage: 50 MG, QD
     Route: 048
     Dates: start: 20190717, end: 20201106
  4. CELECOXIB [Concomitant]
     Active Substance: CELECOXIB
     Indication: Pyrexia
     Dosage: 100 MG, BID
     Route: 048
     Dates: start: 20180706, end: 20201106
  5. LIMAPROST [Concomitant]
     Active Substance: LIMAPROST
     Dosage: 5 MG, BID
     Route: 048
  6. LIMAPROST [Concomitant]
     Active Substance: LIMAPROST
     Dosage: 5 MG, BID
     Route: 048
     Dates: start: 20200908, end: 20201106
  7. REBAMIPIDE [Concomitant]
     Active Substance: REBAMIPIDE
     Dosage: 100 MG, BID
     Route: 048
     Dates: end: 20201106
  8. SPIRONOLACTONE [Concomitant]
     Active Substance: SPIRONOLACTONE
     Indication: Cardiac failure
     Dosage: 12.5 MG, QD
     Route: 048
     Dates: start: 20180804, end: 20201208
  9. AKINETON [Concomitant]
     Active Substance: BIPERIDEN HYDROCHLORIDE
     Indication: Schizophrenia
     Dosage: 0.05 G, QD
     Route: 048
  10. AKINETON [Concomitant]
     Active Substance: BIPERIDEN HYDROCHLORIDE
     Dosage: 0.05 G, QD
     Route: 048
     Dates: start: 20200908
  11. ZYPREXA [Concomitant]
     Active Substance: OLANZAPINE
     Indication: Schizophrenia
     Dosage: 0.1 G, QD
     Route: 048
  12. ZYPREXA [Concomitant]
     Active Substance: OLANZAPINE
     Dosage: 0.1 G, QD
     Route: 048
     Dates: start: 20200908
  13. POTASSIUM GLUCONATE [Concomitant]
     Active Substance: POTASSIUM GLUCONATE
     Indication: Hypokalaemia
     Dosage: 7.5 G, BID
     Route: 048
     Dates: start: 20180705
  14. ETIZOLAM [Concomitant]
     Active Substance: ETIZOLAM
     Indication: Schizophrenia
     Dosage: 0.5 MG, QD
     Route: 048
  15. ETIZOLAM [Concomitant]
     Active Substance: ETIZOLAM
     Dosage: 0.5 MG, QD
     Route: 048
     Dates: start: 20200908
  16. AZOSEMIDE [Concomitant]
     Active Substance: AZOSEMIDE

REACTIONS (6)
  - Gastrointestinal perforation [Recovered/Resolved]
  - Pleural effusion [Unknown]
  - Atelectasis [Unknown]
  - Duodenal ulcer perforation [Unknown]
  - Peritonitis [Unknown]
  - Wrong technique in product usage process [Unknown]

NARRATIVE: CASE EVENT DATE: 20200907
